FAERS Safety Report 8173169-3 (Version None)
Quarter: 2012Q1

REPORT INFORMATION
  Report Type: 
  Country: None (occurrence: None)
  Receive Date: 20120229
  Receipt Date: 20110505
  Transmission Date: 20120608
  Serious: No
  Sender: FDA-Public Use
  Company Number: US-GLAXOSMITHKLINE-A0927034A

PATIENT
  Age: 64 Year
  Sex: Male
  Weight: 113.6 kg

DRUGS (3)
  1. KLONOPIN [Concomitant]
     Indication: SLEEP DISORDER
  2. SUMATRIPTAN [Suspect]
     Indication: MIGRAINE
     Dosage: 6MG AS REQUIRED
     Route: 042
  3. REMERON [Concomitant]
     Indication: SLEEP DISORDER
     Dosage: 30MG AT NIGHT

REACTIONS (4)
  - DRUG INEFFECTIVE [None]
  - FEELING HOT [None]
  - HEADACHE [None]
  - MIGRAINE [None]
